FAERS Safety Report 25643790 (Version 2)
Quarter: 2025Q3

REPORT INFORMATION
  Report Type: Spontaneous
  Country: US (occurrence: US)
  Receive Date: 20250805
  Receipt Date: 20250929
  Transmission Date: 20251020
  Serious: No
  Sender: LUPIN
  Company Number: US-LUPIN PHARMACEUTICALS INC.-2025-06945

PATIENT
  Age: 80 Year
  Weight: 58.957 kg

DRUGS (1)
  1. ALBUTEROL SULFATE [Suspect]
     Active Substance: ALBUTEROL SULFATE
     Indication: Asthma
     Dosage: 2-PUFFS IN MORNING AND Q6H

REACTIONS (4)
  - Drug dose omission by device [Unknown]
  - Device deposit issue [Unknown]
  - Wrong technique in product usage process [Unknown]
  - No adverse event [Unknown]
